FAERS Safety Report 22389218 (Version 1)
Quarter: 2023Q2

REPORT INFORMATION
  Report Type: Spontaneous
  Country: US (occurrence: US)
  Receive Date: 20230531
  Receipt Date: 20230531
  Transmission Date: 20230721
  Serious: Yes (Other)
  Sender: FDA-Public Use
  Company Number: US-PFIZER INC-2012076074

PATIENT
  Age: 12 Year
  Sex: Male

DRUGS (4)
  1. PAMIDRONATE DISODIUM [Suspect]
     Active Substance: PAMIDRONATE DISODIUM
     Dosage: 10 MG (0.37 MG PER KILOGRAM OF BODY WEIGHT) , THREE CONSECUTIVE DAYS
     Route: 042
  2. PAMIDRONATE DISODIUM [Suspect]
     Active Substance: PAMIDRONATE DISODIUM
     Dosage: 60 MG, OVER A THREE-HOUR PERIOD APPROXIMATELY EVERY THREE WEEKS
     Route: 042
  3. PAMIDRONATE DISODIUM [Suspect]
     Active Substance: PAMIDRONATE DISODIUM
     Dosage: 80 MG, INFUSED OVER A PERIOD OF FOUR TO FIVE HOURS
     Route: 042
  4. PAMIDRONATE DISODIUM [Suspect]
     Active Substance: PAMIDRONATE DISODIUM
     Dosage: 100 MG,  INFUSED OVER A PERIOD OF FOUR TO FIVE HOURS
     Route: 042

REACTIONS (1)
  - Osteopetrosis [Unknown]
